FAERS Safety Report 4358129-2 (Version None)
Quarter: 2004Q2

REPORT INFORMATION
  Report Type: 
  Country: None (occurrence: None)
  Receive Date: 20040510
  Receipt Date: 20040423
  Transmission Date: 20050107
  Serious: Yes (Hospitalization)
  Sender: FDA-Public Use
  Company Number: S04-USA-02271-01

PATIENT
  Age: 65 Year
  Sex: Female

DRUGS (14)
  1. NAMENDA [Suspect]
     Indication: DEMENTIA ALZHEIMER'S TYPE
     Dosage: 15 MG QD PO
     Route: 048
     Dates: start: 20040225, end: 20040303
  2. NAMENDA [Suspect]
     Indication: DEMENTIA ALZHEIMER'S TYPE
     Dosage: 20 MG QD PO
     Route: 048
     Dates: start: 20040304, end: 20040330
  3. NAMENDA [Suspect]
     Indication: DEMENTIA ALZHEIMER'S TYPE
     Dosage: 5 MG QD PO
     Route: 048
     Dates: start: 20040211, end: 20040217
  4. NAMENDA [Suspect]
     Indication: DEMENTIA ALZHEIMER'S TYPE
     Dosage: 10 MG QD PO
     Route: 048
     Dates: start: 20040218, end: 20040224
  5. COUMADIN [Suspect]
  6. ESTRADIOL [Concomitant]
  7. ALTACE [Concomitant]
  8. METOPROLOL [Concomitant]
  9. EXELON [Concomitant]
  10. ASPIRIN [Concomitant]
  11. ZOLOFT [Concomitant]
  12. ZOCOR [Concomitant]
  13. PHENERGAN [Concomitant]
  14. DARVOCET [Concomitant]

REACTIONS (13)
  - ACQUIRED OESOPHAGEAL WEB [None]
  - ANOREXIA [None]
  - DIARRHOEA [None]
  - DRUG INTERACTION [None]
  - HIATUS HERNIA [None]
  - HYPOKALAEMIA [None]
  - INTERNATIONAL NORMALISED RATIO INCREASED [None]
  - NAUSEA [None]
  - SENSORY DISTURBANCE [None]
  - VERTIGO [None]
  - VISUAL DISTURBANCE [None]
  - VOMITING [None]
  - WEIGHT DECREASED [None]
